FAERS Safety Report 5910777-1 (Version None)
Quarter: 2008Q4

REPORT INFORMATION
  Report Type: 
  Country: None (occurrence: None)
  Receive Date: 20081007
  Receipt Date: 20080429
  Transmission Date: 20090506
  Serious: No
  Sender: FDA-Public Use
  Company Number: US-ASTRAZENECA-2008UW08698

PATIENT
  Age: 61 Year
  Sex: Female
  Weight: 104.3 kg

DRUGS (3)
  1. ARIMIDEX [Suspect]
     Route: 048
     Dates: start: 20040101
  2. TRIAMTERENE [Concomitant]
     Indication: OEDEMA PERIPHERAL
  3. NAPROXEN [Concomitant]

REACTIONS (2)
  - MYALGIA [None]
  - SWELLING [None]
